FAERS Safety Report 6484961-5 (Version None)
Quarter: 2009Q4

REPORT INFORMATION
  Report Type: 
  Country: None (occurrence: None)
  Receive Date: 20091203
  Receipt Date: 20091125
  Transmission Date: 20100525
  Serious: Yes (Life-Threatening, Hospitalization)
  Sender: FDA-Public Use
  Company Number: 2009SP038315

PATIENT
  Age: 88 Year
  Sex: Female

DRUGS (14)
  1. MIRTAZAPINE [Suspect]
     Dosage: 15 MG;QD;PO
     Route: 048
     Dates: start: 20091009, end: 20091012
  2. FUNGIZONE [Concomitant]
  3. NEXIUM [Concomitant]
  4. KARDEGIC [Concomitant]
  5. RISPERDAL [Concomitant]
  6. SEROPLEX [Concomitant]
  7. TARDYFERON [Concomitant]
  8. TRIATEC [Concomitant]
  9. LOVENOX [Concomitant]
  10. CACIT D3 [Concomitant]
  11. CLAMOXYL [Concomitant]
  12. MEPROBAMATE [Concomitant]
  13. DOLIPRANE [Concomitant]
  14. PRAZEPAM [Concomitant]

REACTIONS (7)
  - CERVICAL VERTEBRAL FRACTURE [None]
  - DYSPNOEA [None]
  - LARYNGEAL DYSPNOEA [None]
  - NECK PAIN [None]
  - PHARYNGEAL OEDEMA [None]
  - SPEECH DISORDER [None]
  - TONGUE OEDEMA [None]
